FAERS Safety Report 5420406-1 (Version None)
Quarter: 2007Q3

REPORT INFORMATION
  Report Type: 
  Country: None (occurrence: None)
  Receive Date: 20070816
  Receipt Date: 20070803
  Transmission Date: 20080115
  Serious: Yes (Other)
  Sender: FDA-Public Use
  Company Number: 39649

PATIENT
  Sex: Female

DRUGS (1)
  1. AMIODARONE HCL [Suspect]
     Dosage: 150 MG BOLUS INFUSION (LOADING D
     Dates: start: 20070803

REACTIONS (2)
  - EXPIRED DRUG ADMINISTERED [None]
  - MEDICATION ERROR [None]
